FAERS Safety Report 9878447 (Version 2)
Quarter: 2014Q1

REPORT INFORMATION
  Report Type: Spontaneous
  Country: US (occurrence: US)
  Receive Date: 20140206
  Receipt Date: 20140206
  Transmission Date: 20141002
  Serious: No
  Sender: FDA-Public Use
  Company Number: US-ALLERGAN-1311246US

PATIENT
  Age: 65 Year
  Sex: Female

DRUGS (6)
  1. BOTOX [Suspect]
     Indication: MIGRAINE
     Dosage: UNK, SINGLE
  2. LIPITOR [Concomitant]
     Indication: PRODUCT USED FOR UNKNOWN INDICATION
  3. TOPAMAX [Concomitant]
     Indication: MIGRAINE PROPHYLAXIS
  4. ESTRACE [Concomitant]
     Indication: PRODUCT USED FOR UNKNOWN INDICATION
  5. ESTRADIOL [Concomitant]
     Indication: PRODUCT USED FOR UNKNOWN INDICATION
  6. CYMBALTA [Concomitant]
     Indication: PRODUCT USED FOR UNKNOWN INDICATION
     Dosage: 20 MG, UNK
     Route: 048

REACTIONS (6)
  - Dizziness [Recovered/Resolved]
  - Neck pain [Recovering/Resolving]
  - Muscle spasms [Recovering/Resolving]
  - Nausea [Recovered/Resolved]
  - Facial paresis [Not Recovered/Not Resolved]
  - Headache [Recovered/Resolved]
